FAERS Safety Report 4503317-5 (Version None)
Quarter: 2004Q4

REPORT INFORMATION
  Report Type: 
  Country: None (occurrence: None)
  Receive Date: 20041112
  Receipt Date: 20041029
  Transmission Date: 20050328
  Serious: Yes (Other)
  Sender: FDA-Public Use
  Company Number: 2004-07-0566

PATIENT
  Age: 73 Year
  Sex: Female
  Weight: 68 kg

DRUGS (2)
  1. CLARITIN [Suspect]
     Indication: DERMATITIS CONTACT
     Dosage: 10 MG DAILY ORAL
     Route: 048
     Dates: start: 20040710, end: 20040712
  2. LIDOMEX CREAM [Concomitant]

REACTIONS (3)
  - DIZZINESS [None]
  - POSTURE ABNORMAL [None]
  - VOMITING [None]
